FAERS Safety Report 5062391-0 (Version None)
Quarter: 2006Q3

REPORT INFORMATION
  Report Type: 
  Country: None (occurrence: None)
  Receive Date: 20060721
  Receipt Date: 20060706
  Transmission Date: 20061208
  Serious: Yes (Other)
  Sender: FDA-Public Use
  Company Number: 2006S1006216

PATIENT
  Age: 15 Year
  Sex: Male

DRUGS (10)
  1. CYSTAGON [Suspect]
     Indication: CYSTINOSIS
     Dosage: SEE IMAGE
     Route: 048
     Dates: end: 20060501
  2. CYSTAGON [Suspect]
     Indication: CYSTINOSIS
     Dosage: SEE IMAGE
     Route: 048
     Dates: start: 20060501, end: 20060701
  3. CYSTAGON [Suspect]
     Indication: CYSTINOSIS
     Dosage: SEE IMAGE
     Route: 048
     Dates: start: 19980101
  4. CYSTAGON [Suspect]
     Indication: CYSTINOSIS
     Dosage: SEE IMAGE
     Route: 048
     Dates: start: 20060701
  5. ALFACALCIDOL [Concomitant]
  6. SOMATROPIN [Concomitant]
  7. FERRIC FUMARATE [Concomitant]
  8. POTASSIUM BICARBONATE [Concomitant]
  9. L-CARNITHINE [Concomitant]
  10. SODIUM POTASSIUM PHOSPHATE [Concomitant]

REACTIONS (2)
  - SKIN LESION [None]
  - SKIN STRIAE [None]
